FAERS Safety Report 5705871-4 (Version None)
Quarter: 2008Q2

REPORT INFORMATION
  Report Type: 
  Country: None (occurrence: None)
  Receive Date: 20080415
  Receipt Date: 20080403
  Transmission Date: 20081010
  Serious: No
  Sender: FDA-Public Use
  Company Number: GB-PFIZER INC-2008020393

PATIENT
  Age: 72 Year
  Sex: Female

DRUGS (7)
  1. SPIRONOLACTONE [Suspect]
     Indication: HYPERTENSION
  2. DOXAZOSIN [Suspect]
  3. ATENOLOL [Suspect]
  4. LISINOPRIL [Suspect]
     Indication: HYPERTENSION
  5. MOXONIDINE [Suspect]
  6. BENDROFLUMETHIAZIDE [Concomitant]
     Route: 048
  7. FELODIPINE [Concomitant]
     Route: 048

REACTIONS (1)
  - NO ADVERSE EVENT [None]
